FAERS Safety Report 5463585-2 (Version None)
Quarter: 2007Q3

REPORT INFORMATION
  Report Type: 
  Country: None (occurrence: None)
  Receive Date: 20070920
  Receipt Date: 20070919
  Transmission Date: 20080115
  Serious: Yes (Hospitalization)
  Sender: FDA-Public Use
  Company Number: US-GENENTECH-247166

PATIENT
  Sex: Female

DRUGS (10)
  1. RANIBIZUMAB [Suspect]
     Indication: MACULAR DEGENERATION
     Route: 031
     Dates: start: 20051010
  2. RANIBIZUMAB [Suspect]
     Indication: RETINAL CYST
  3. HYDROCHLOROTHIAZIDE [Concomitant]
     Indication: HYPERTENSION
     Dates: start: 19750101
  4. SYNTHROID [Concomitant]
     Indication: HYPOTHYROIDISM
     Dates: start: 19750101
  5. MICRO-K [Concomitant]
     Indication: HYPERTENSION
     Dates: start: 19750101
  6. AMBIEN [Concomitant]
     Indication: SLEEP DISORDER
     Dates: start: 20020101
  7. PREMPRO [Concomitant]
     Indication: MENOPAUSE
     Dates: start: 19900101
  8. ARTIFICIAL TEARS [Concomitant]
     Indication: DRY EYE
     Dates: start: 19800101
  9. CIPRO [Concomitant]
     Indication: SKIN ULCER
     Dates: start: 20061231, end: 20070109
  10. MINOCYCLINE HCL [Concomitant]
     Indication: SKIN ULCER
     Dates: start: 20070131, end: 20070209

REACTIONS (1)
  - CEREBELLAR HAEMORRHAGE [None]
